FAERS Safety Report 10178203 (Version 1)
Quarter: 2014Q2

REPORT INFORMATION
  Report Type: Spontaneous
  Country: TW (occurrence: TW)
  Receive Date: 20140519
  Receipt Date: 20140519
  Transmission Date: 20141212
  Serious: Yes (Other)
  Sender: FDA-Public Use
  Company Number: TW-AMGEN INC.-TWNSP2014036575

PATIENT
  Age: 60 Year
  Sex: Female

DRUGS (2)
  1. ENBREL [Suspect]
     Indication: RHEUMATOID ARTHRITIS
     Dosage: 25 MG, BIW
     Route: 058
     Dates: start: 20091130
  2. ENBREL [Suspect]
     Dosage: 25 MG, BIW
     Route: 058
     Dates: start: 20140511

REACTIONS (2)
  - Tooth disorder [Unknown]
  - Cellulitis [Recovered/Resolved]
